FAERS Safety Report 25573217 (Version 1)
Quarter: 2025Q3

REPORT INFORMATION
  Report Type: Spontaneous
  Country: US (occurrence: None)
  Receive Date: 20250716
  Receipt Date: 20250716
  Transmission Date: 20251020
  Serious: Yes (Other)
  Sender: FDA-CTU
  Company Number: None

PATIENT
  Age: 62 Year
  Sex: Female
  Weight: 90.2 kg

DRUGS (5)
  1. FETROJA [Suspect]
     Active Substance: CEFIDEROCOL SULFATE TOSYLATE
     Indication: Arthritis infective
     Dosage: 2 G GRAM(S) 3 TIMES INTRAVENOUS?
     Route: 042
     Dates: start: 20250705
  2. FETROJA [Suspect]
     Active Substance: CEFIDEROCOL SULFATE TOSYLATE
     Indication: Device related infection
  3. FLUCONAZOLE [Concomitant]
     Active Substance: FLUCONAZOLE
  4. Imipenem-Cilastatin-Relebactam [Concomitant]
  5. MICAFUNGIN [Suspect]
     Active Substance: MICAFUNGIN SODIUM

REACTIONS (2)
  - Liver function test increased [None]
  - Adverse drug reaction [None]

NARRATIVE: CASE EVENT DATE: 20250708
